FAERS Safety Report 6466579-3 (Version None)
Quarter: 2009Q4

REPORT INFORMATION
  Report Type: 
  Country: None (occurrence: None)
  Receive Date: 20091118
  Receipt Date: 20090812
  Transmission Date: 20100525
  Serious: Yes (Hospitalization)
  Sender: FDA-Public Use
  Company Number: 2009BI022049

PATIENT
  Age: 42 Year
  Sex: Female

DRUGS (1)
  1. TYSABRI [Suspect]
     Indication: MULTIPLE SCLEROSIS
     Dosage: 300 MG;QM;IV
     Route: 042
     Dates: start: 20090107

REACTIONS (15)
  - ABASIA [None]
  - ABDOMINAL PAIN [None]
  - ABDOMINAL PAIN UPPER [None]
  - CHEST PAIN [None]
  - DISORIENTATION [None]
  - DYSSTASIA [None]
  - FLATULENCE [None]
  - HYPOPHAGIA [None]
  - MALAISE [None]
  - MEMORY IMPAIRMENT [None]
  - NEUROMYELITIS OPTICA [None]
  - OPTIC NEURITIS [None]
  - PERIPHERAL COLDNESS [None]
  - PYREXIA [None]
  - VOMITING [None]
